FAERS Safety Report 15215289 (Version 1)
Quarter: 2018Q3

REPORT INFORMATION
  Report Type: Spontaneous
  Country: DK (occurrence: DK)
  Receive Date: 20180730
  Receipt Date: 20180730
  Transmission Date: 20181010
  Serious: Yes (Hospitalization)
  Sender: FDA-Public Use
  Company Number: DK-BAXTER-2017BAX028953

PATIENT
  Age: 45 Year
  Sex: Female
  Weight: 87 kg

DRUGS (8)
  1. TAXOTERE [Suspect]
     Active Substance: DOCETAXEL
     Indication: PROPHYLAXIS
     Dosage: 3 TIMES
     Route: 065
  2. SENDOXAN [Suspect]
     Active Substance: CYCLOPHOSPHAMIDE
     Indication: INVASIVE DUCTAL BREAST CARCINOMA
     Dosage: DOSE: TREATED AT THREE?WEEK INTERVALS?CHEMOTHERAPY AS PER PROTOCOL B. 12/15/2014 3RD SERIES
     Route: 065
     Dates: start: 201410, end: 20150217
  3. EPIRUBICIN ACTAVIS [Suspect]
     Active Substance: EPIRUBICIN
     Indication: PROPHYLAXIS
     Dosage: SENDOXAN AND EPIRUBICIN COMBINATION 3 TIMES
     Route: 065
     Dates: start: 20141104, end: 20150217
  4. DOCETAXEL HOSPIRA [Suspect]
     Active Substance: DOCETAXEL
     Indication: INVASIVE DUCTAL BREAST CARCINOMA
     Dosage: ON 01/06/2015, 01/27/2015 AND 02/17/2015?CHEMOTHERAPY AS PER PROTOCOL B. 02/17/2015 6TH SERIES
     Route: 042
     Dates: start: 201501
  5. ZOLADEX [Suspect]
     Active Substance: GOSERELIN ACETATE
     Indication: INVASIVE DUCTAL BREAST CARCINOMA
     Route: 058
     Dates: start: 201504
  6. EPIRUBICIN ACTAVIS [Suspect]
     Active Substance: EPIRUBICIN
     Indication: INVASIVE DUCTAL BREAST CARCINOMA
     Dosage: EPIRUBICIN ON 11/04/2014, 11/25/2014 AND 12/16/2014?CHEMOTHERAPY AS PER PROTOCOL B. JANUARY 2015: ST
     Route: 042
     Dates: start: 201410, end: 201501
  7. SENDOXAN [Suspect]
     Active Substance: CYCLOPHOSPHAMIDE
     Indication: PROPHYLAXIS
     Dosage: SENDOXAN AND EPIRUBICIN COMBINATION 3 TIMES
     Route: 065
     Dates: start: 20141104, end: 20150217
  8. ARIMIDEX [Suspect]
     Active Substance: ANASTROZOLE
     Indication: INVASIVE DUCTAL BREAST CARCINOMA
     Dosage: STRENGTH: 1 MG
     Route: 048
     Dates: start: 201603

REACTIONS (4)
  - Gait disturbance [Not Recovered/Not Resolved]
  - Arthralgia [Not Recovered/Not Resolved]
  - Pain in extremity [Not Recovered/Not Resolved]
  - Myalgia [Unknown]

NARRATIVE: CASE EVENT DATE: 20150111
